FAERS Safety Report 8518084-8 (Version None)
Quarter: 2012Q3

REPORT INFORMATION
  Report Type: 
  Country: None (occurrence: None)
  Receive Date: 20120718
  Receipt Date: 20111013
  Transmission Date: 20120928
  Serious: No
  Sender: FDA-Public Use
  Company Number: US-BRISTOL-MYERS SQUIBB COMPANY-16051328

PATIENT
  Age: 53 Year
  Sex: Female

DRUGS (1)
  1. COUMADIN [Suspect]
     Dosage: 1DF:1 TABS OR MORE(VARIES WITH PT/INR LEVELS)

REACTIONS (1)
  - DRUG INEFFECTIVE [None]
